FAERS Safety Report 9688921 (Version 1)
Quarter: 2013Q4

REPORT INFORMATION
  Report Type: Spontaneous
  Country: TR (occurrence: None)
  Receive Date: 20131112
  Receipt Date: 20131112
  Transmission Date: 20140711
  Serious: Yes (Hospitalization)
  Sender: FDA-Public Use
  Company Number: IPC201310-000437

PATIENT
  Age: 34 Year
  Sex: Female

DRUGS (5)
  1. FUROSEMIDE [Suspect]
     Route: 042
  2. WARFARIN [Suspect]
  3. NITRATE (NITRATE) (NITRATE) [Concomitant]
  4. PLASMA (PLASMA) (PLASMA) [Concomitant]
  5. ERYTHROCYTE (ERYTHROCYTE) (ERYTHROCYTE) [Concomitant]

REACTIONS (14)
  - Hypokalaemia [None]
  - Torsade de pointes [None]
  - Ventricular fibrillation [None]
  - Breath sounds abnormal [None]
  - Rales [None]
  - Atrial fibrillation [None]
  - Oxygen saturation decreased [None]
  - Blood sodium decreased [None]
  - Haemoglobin decreased [None]
  - International normalised ratio increased [None]
  - Cardiac failure [None]
  - Overdose [None]
  - Blood calcium decreased [None]
  - Blood potassium increased [None]
